FAERS Safety Report 11626608 (Version 2)
Quarter: 2015Q4

REPORT INFORMATION
  Report Type: Spontaneous
  Country: NO (occurrence: NO)
  Receive Date: 20151013
  Receipt Date: 20151106
  Transmission Date: 20160304
  Serious: Yes (Hospitalization, Other)
  Sender: FDA-Public Use
  Company Number: NO-BRISTOL-MYERS SQUIBB COMPANY-BMS-2015-066361

PATIENT
  Age: 58 Year
  Sex: Female

DRUGS (10)
  1. CARBOPLATIN. [Suspect]
     Active Substance: CARBOPLATIN
     Indication: SMALL CELL LUNG CANCER
     Route: 041
     Dates: start: 20150827
  2. MORPHINE [Concomitant]
     Active Substance: MORPHINE
     Indication: SMALL CELL LUNG CANCER
     Dosage: 10 MG, PRN
     Route: 065
  3. CETIRIZINE [Concomitant]
     Active Substance: CETIRIZINE HYDROCHLORIDE
     Indication: SMALL CELL LUNG CANCER
     Dosage: 10 MG, QD
     Route: 048
  4. VEPESID [Suspect]
     Active Substance: ETOPOSIDE
     Dosage: 150 MG, BID
     Route: 048
     Dates: start: 20150828, end: 20150830
  5. MORPHINE [Concomitant]
     Active Substance: MORPHINE
     Dosage: 10 MG, UNK
     Route: 065
  6. SOMAC [Concomitant]
     Active Substance: PANTOPRAZOLE SODIUM
     Indication: SMALL CELL LUNG CANCER
     Route: 065
  7. TARGINIQ ER [Concomitant]
     Active Substance: NALOXONE HYDROCHLORIDE\OXYCODONE HYDROCHLORIDE
     Indication: SMALL CELL LUNG CANCER
     Dosage: 1 DF, UNK
     Route: 048
  8. DUPHALAC [Concomitant]
     Active Substance: LACTULOSE
     Indication: SMALL CELL LUNG CANCER
     Route: 048
  9. MEDROL [Concomitant]
     Active Substance: METHYLPREDNISOLONE
     Indication: SMALL CELL LUNG CANCER
     Route: 048
  10. VEPESID [Suspect]
     Active Substance: ETOPOSIDE
     Indication: SMALL CELL LUNG CANCER
     Dosage: 167 MG, UNK
     Route: 041
     Dates: start: 20150827

REACTIONS (2)
  - Spinal cord paralysis [Recovering/Resolving]
  - Spinal cord infarction [Recovering/Resolving]

NARRATIVE: CASE EVENT DATE: 20150904
